FAERS Safety Report 5466841-7 (Version None)
Quarter: 2007Q3

REPORT INFORMATION
  Report Type: 
  Country: None (occurrence: None)
  Receive Date: 20070925
  Receipt Date: 20070921
  Transmission Date: 20080115
  Serious: Yes (Hospitalization)
  Sender: FDA-Public Use
  Company Number: US-BRISTOL-MYERS SQUIBB COMPANY-13747498

PATIENT
  Age: 40 Year
  Sex: Female

DRUGS (14)
  1. CYTOXAN [Suspect]
     Indication: BREAST CANCER
     Dosage: DOSE REDUCED TO 450MG/KG
     Route: 042
     Dates: start: 20070222, end: 20070222
  2. ADRIAMYCIN PFS [Suspect]
     Indication: BREAST CANCER
     Dosage: DOSE REDUCED TO 45MG/M2
     Route: 042
     Dates: start: 20070222, end: 20070222
  3. BEVACIZUMAB [Suspect]
     Indication: BREAST CANCER
     Dates: start: 20070222, end: 20070222
  4. NEULASTA [Suspect]
     Indication: BREAST CANCER
     Route: 042
     Dates: start: 20070223, end: 20070223
  5. LORAZEPAM [Concomitant]
     Indication: ANXIETY
     Route: 048
     Dates: start: 20070122
  6. LORAZEPAM [Concomitant]
     Indication: SLEEP DISORDER
     Route: 048
     Dates: start: 20070122
  7. LORAZEPAM [Concomitant]
     Indication: NAUSEA
     Route: 048
     Dates: start: 20070122
  8. BUPROPION HCL [Concomitant]
     Indication: DEPRESSION
     Route: 048
     Dates: start: 20061101
  9. SENOKOT [Concomitant]
     Indication: CONSTIPATION
     Route: 048
     Dates: start: 20000101
  10. ESCITALOPRAM OXALATE [Concomitant]
     Indication: DEPRESSION
     Route: 048
     Dates: start: 20061101
  11. AMBIEN CR [Concomitant]
     Indication: INSOMNIA
     Route: 048
     Dates: start: 20070208
  12. PREGABALIN [Concomitant]
     Indication: NEUROPATHY
     Route: 048
     Dates: start: 20070131
  13. ALPRAZOLAM [Concomitant]
     Indication: ANXIETY
     Route: 048
     Dates: start: 20030101
  14. TRICOR [Concomitant]
     Indication: BLOOD TRIGLYCERIDES INCREASED
     Route: 048
     Dates: start: 19960101

REACTIONS (2)
  - FEBRILE NEUTROPENIA [None]
  - OESOPHAGITIS ULCERATIVE [None]
